FAERS Safety Report 10525329 (Version 1)
Quarter: 2014Q4

REPORT INFORMATION
  Report Type: Spontaneous
  Country: US (occurrence: US)
  Receive Date: 20141017
  Receipt Date: 20141017
  Transmission Date: 20150528
  Serious: No
  Sender: FDA-Public Use
  Company Number: US-TEVA-515294USA

PATIENT
  Sex: Female

DRUGS (1)
  1. COPAXONE [Suspect]
     Active Substance: GLATIRAMER ACETATE
     Indication: MULTIPLE SCLEROSIS
     Dates: start: 2014

REACTIONS (8)
  - Sinus disorder [Unknown]
  - Ear discomfort [Unknown]
  - Injection site reaction [Unknown]
  - Injection site urticaria [Unknown]
  - Nasopharyngitis [Unknown]
  - Balance disorder [Unknown]
  - Injection site haemorrhage [Unknown]
  - Tremor [Unknown]

NARRATIVE: CASE EVENT DATE: 2014
